FAERS Safety Report 7893099-1 (Version None)
Quarter: 2011Q4

REPORT INFORMATION
  Report Type: 
  Country: None (occurrence: None)
  Receive Date: 20111104
  Receipt Date: 20111021
  Transmission Date: 20120403
  Serious: Yes (Other)
  Sender: FDA-Public Use
  Company Number: DK-ELI_LILLY_AND_COMPANY-DK201110006643

PATIENT
  Sex: Female
  Weight: 65 kg

DRUGS (5)
  1. ZYPREXA [Suspect]
     Dosage: 5 MG, QD
     Route: 048
     Dates: start: 20040101, end: 20040601
  2. ZYPREXA [Suspect]
     Dosage: 2 MG, QOD
     Route: 048
  3. ZYPREXA [Suspect]
     Indication: MENTAL DISORDER
     Dosage: 2 MG, QD
     Route: 048
     Dates: start: 20030516
  4. ZYPREXA [Suspect]
     Dosage: 7.5 MG, QOD
     Route: 048
     Dates: start: 20040101
  5. ZYPREXA [Suspect]
     Dosage: UNK
     Route: 048
     Dates: end: 20050301

REACTIONS (18)
  - DISTURBANCE IN ATTENTION [None]
  - ANXIETY [None]
  - DEMENTIA [None]
  - HORMONE LEVEL ABNORMAL [None]
  - CONFUSIONAL STATE [None]
  - TONGUE SPASM [None]
  - INTENTIONAL DRUG MISUSE [None]
  - SUICIDAL IDEATION [None]
  - PERSONALITY DISORDER [None]
  - SPEECH DISORDER [None]
  - ABNORMAL BEHAVIOUR [None]
  - DRUG WITHDRAWAL SYNDROME [None]
  - DEPENDENCE [None]
  - DEPRESSION [None]
  - SELF ESTEEM DECREASED [None]
  - DISORIENTATION [None]
  - PREMATURE AGEING [None]
  - MEMORY IMPAIRMENT [None]
